FAERS Safety Report 8552940-X (Version None)
Quarter: 2012Q3

REPORT INFORMATION
  Report Type: 
  Country: None (occurrence: None)
  Receive Date: 20120731
  Receipt Date: 20120727
  Transmission Date: 20120928
  Serious: Yes (Hospitalization)
  Sender: FDA-Public Use
  Company Number: PHHY2012NL065337

PATIENT
  Sex: Female

DRUGS (5)
  1. DEXAMETHASONE [Concomitant]
  2. ZOMETA [Suspect]
     Dosage: 4 MG/100 ML 1X 28 DAYS
     Dates: start: 20120727
  3. ZOMETA [Suspect]
     Dosage: 4 MG/100 ML 1X 28 DAYS
     Dates: start: 20120628
  4. ZOMETA [Suspect]
     Dosage: 4 MG/100 ML 1X 28 DAYS
     Dates: start: 20110207
  5. ZOMETA [Suspect]
     Indication: BREAST CANCER METASTATIC
     Dosage: 4 MG/100 ML 1X 28 DAYS

REACTIONS (2)
  - BLOOD GLUCOSE INCREASED [None]
  - HYPOTENSION [None]
